FAERS Safety Report 24784586 (Version 1)
Quarter: 2024Q4

REPORT INFORMATION
  Report Type: Other
  Country: IT (occurrence: IT)
  Receive Date: 20241227
  Receipt Date: 20241227
  Transmission Date: 20250114
  Serious: Yes (Other)
  Sender: Atnahs Healthcare
  Company Number: IT-PFM-2021-00991

PATIENT
  Age: 25 Year
  Sex: Male

DRUGS (6)
  1. VALIUM [Suspect]
     Active Substance: DIAZEPAM
     Indication: Intentional self-injury
     Dosage: SINGLE ORAL DROPS
     Route: 048
     Dates: start: 20210124, end: 20210124
  2. FERROUS SULFATE [Suspect]
     Active Substance: FERROUS SULFATE
     Indication: Intentional self-injury
     Dosage: ONE IN TOTAL
     Route: 048
     Dates: start: 20210124, end: 20210124
  3. RAMIPRIL [Suspect]
     Active Substance: RAMIPRIL
     Indication: Intentional self-injury
     Dosage: ONE IN TOTAL
     Route: 048
     Dates: start: 20210124, end: 20210124
  4. HALDOL [Suspect]
     Active Substance: HALOPERIDOL
     Indication: Intentional self-injury
     Dosage: ONE IN TOTAL
     Route: 048
     Dates: start: 20210124, end: 20210124
  5. GLUCOPHAGE [Suspect]
     Active Substance: METFORMIN HYDROCHLORIDE
     Indication: Intentional self-injury
     Dosage: ONE IN TOTOL
     Route: 048
     Dates: start: 20210124, end: 20210124
  6. HYDROCHLOROTHIAZIDE\VALSARTAN [Suspect]
     Active Substance: HYDROCHLOROTHIAZIDE\VALSARTAN
     Indication: Intentional self-injury
     Dosage: 14 DF, SINGLE
     Route: 048
     Dates: start: 20210124, end: 20210124

REACTIONS (2)
  - Intentional self-injury [Unknown]
  - Drug abuse [Unknown]

NARRATIVE: CASE EVENT DATE: 20210124
